FAERS Safety Report 7880573-7 (Version None)
Quarter: 2011Q4

REPORT INFORMATION
  Report Type: 
  Country: None (occurrence: None)
  Receive Date: 20111101
  Receipt Date: 20100616
  Transmission Date: 20120403
  Serious: No
  Sender: FDA-Public Use
  Company Number: US-BAYER-201026520NA

PATIENT
  Age: 67 Year
  Sex: Female
  Weight: 72.562 kg

DRUGS (5)
  1. HYDROCHLOROTHIAZIDE [Concomitant]
  2. BARIUM [Concomitant]
     Dosage: UNK
  3. SYNTHROID [Concomitant]
  4. ULTRAVIST 300 [Suspect]
     Indication: COMPUTERISED TOMOGRAM
     Dosage: 110 ML, ONCE
     Route: 042
     Dates: start: 20100616, end: 20100616
  5. COZAAR [Concomitant]

REACTIONS (3)
  - OROPHARYNGEAL PAIN [None]
  - URTICARIA [None]
  - NASAL CONGESTION [None]
